FAERS Safety Report 25921000 (Version 1)
Quarter: 2025Q4

REPORT INFORMATION
  Report Type: Spontaneous
  Country: US (occurrence: None)
  Receive Date: 20251013
  Receipt Date: 20251013
  Transmission Date: 20260117
  Serious: Yes (Hospitalization)
  Sender: FDA-CTU
  Company Number: None

PATIENT
  Sex: Female

DRUGS (1)
  1. MYCOPHENOLATE MOFETIL [Suspect]
     Active Substance: MYCOPHENOLATE MOFETIL
     Indication: Myelitis transverse
     Dosage: 250 MG TWICE A DAY ORAL?
     Route: 048
     Dates: start: 20250523

REACTIONS (2)
  - Seizure [None]
  - Respiratory arrest [None]
